FAERS Safety Report 8595710-9 (Version None)
Quarter: 2012Q3

REPORT INFORMATION
  Report Type: 
  Country: None (occurrence: None)
  Receive Date: 20120801
  Receipt Date: 20120716
  Transmission Date: 20120928
  Serious: Yes (Other)
  Sender: FDA-Public Use
  Company Number: 2011MA003664

PATIENT
  Sex: Female
  Weight: 86.1834 kg

DRUGS (35)
  1. DARVOCET [Concomitant]
  2. FACTIVE [Concomitant]
  3. FERROUS SULFATE TAB [Concomitant]
  4. MIRACLE MOUTHWASH [Concomitant]
  5. PROPOXYPHENE HCL [Concomitant]
  6. SINEMET [Concomitant]
  7. CEFTZIL [Concomitant]
  8. KLONOPIN [Concomitant]
  9. PROTONIX [Concomitant]
  10. VALTREX [Concomitant]
  11. ANTIVERT [Concomitant]
  12. ASTELIN [Concomitant]
  13. B12 SUPPLEMENT [Concomitant]
  14. BACTRIM DX [Concomitant]
  15. LEVAQUIN [Concomitant]
  16. POLYTUSSIN [Concomitant]
  17. METOCLOPRAMIDE [Suspect]
     Indication: GASTROOESOPHAGEAL REFLUX DISEASE
     Dosage: 10 MG;BUD;PO
     Route: 048
     Dates: start: 20040120, end: 20041201
  18. BUTALBITAL/APAP [Concomitant]
  19. KEFLEX [Concomitant]
  20. LORTAB [Concomitant]
  21. MUCINEX [Concomitant]
  22. NEXIUM [Concomitant]
  23. SHOULDER INJECTIONS [Concomitant]
  24. VOLTAREN [Concomitant]
  25. ZYRTEC [Concomitant]
  26. FOLIC ACID [Concomitant]
  27. PREVACID [Concomitant]
  28. ASCORBIC ACID [Concomitant]
  29. ZITHROMAX [Concomitant]
  30. COMPAZINE [Concomitant]
  31. NYSTATIN [Concomitant]
  32. PHENERGAN HCL [Concomitant]
  33. ALBUTEROL [Concomitant]
  34. DEPO-MEDROL [Concomitant]
  35. FLOMAX [Concomitant]

REACTIONS (38)
  - NYSTAGMUS [None]
  - UPPER RESPIRATORY TRACT INFECTION [None]
  - BRONCHITIS [None]
  - VERTIGO POSITIONAL [None]
  - MOUTH ULCERATION [None]
  - VERTIGO [None]
  - MYOCLONUS [None]
  - SINUSITIS [None]
  - ANXIETY [None]
  - EMOTIONAL DISORDER [None]
  - CHILLS [None]
  - PARAESTHESIA [None]
  - RESTLESS LEGS SYNDROME [None]
  - NAUSEA [None]
  - ABDOMINAL DISCOMFORT [None]
  - CAROTID ARTERIOSCLEROSIS [None]
  - URTICARIA [None]
  - PYREXIA [None]
  - HEADACHE [None]
  - ECONOMIC PROBLEM [None]
  - UNEVALUABLE EVENT [None]
  - BENIGN PROSTATIC HYPERPLASIA [None]
  - TONGUE ULCERATION [None]
  - PHARYNGEAL ULCERATION [None]
  - FATIGUE [None]
  - INSOMNIA [None]
  - FOLLICULITIS [None]
  - STAPHYLOCOCCAL INFECTION [None]
  - CHEST PAIN [None]
  - PRURITUS [None]
  - COUGH [None]
  - HERPES ZOSTER [None]
  - WOUND [None]
  - ARTHROPATHY [None]
  - DIZZINESS [None]
  - CEREBRAL ISCHAEMIA [None]
  - RASH [None]
  - BRONCHOSPASM [None]
